FAERS Safety Report 26192790 (Version 1)
Quarter: 2025Q4

REPORT INFORMATION
  Report Type: Report from Study
  Country: CA (occurrence: CA)
  Receive Date: 20251223
  Receipt Date: 20251223
  Transmission Date: 20260118
  Serious: Yes (Other)
  Sender: BIOVITRUM
  Company Number: CA-BIOVITRUM-2025-CA-017865

PATIENT
  Age: 79 Year
  Sex: Male
  Weight: 58.5 kg

DRUGS (5)
  1. PACRITINIB [Suspect]
     Active Substance: PACRITINIB
     Indication: Primary myelofibrosis
     Dosage: TWO TIMES A DAY
     Route: 048
     Dates: start: 20230329
  2. LOPERAMIDE [Concomitant]
     Active Substance: LOPERAMIDE
     Indication: Diarrhoea
     Dosage: PRN (AS NEEDED)
     Dates: start: 20230329
  3. PANTOPRAZOLE [Concomitant]
     Active Substance: PANTOPRAZOLE
     Indication: Gastrooesophageal reflux disease
     Dosage: DAILY
     Dates: start: 20241203
  4. VITAMIN C [Concomitant]
     Active Substance: ASCORBIC ACID
     Indication: Supplementation therapy
     Dates: start: 202209
  5. VITAMIN D [Concomitant]
     Active Substance: VITAMIN D NOS
     Indication: Supplementation therapy
     Dosage: OD (ONCE A DAY)
     Dates: start: 202209

REACTIONS (1)
  - Bowen^s disease [Not Recovered/Not Resolved]

NARRATIVE: CASE EVENT DATE: 20251202
